FAERS Safety Report 15160538 (Version 1)
Quarter: 2018Q3

REPORT INFORMATION
  Report Type: Spontaneous
  Country: DE (occurrence: DE)
  Receive Date: 20180718
  Receipt Date: 20180718
  Transmission Date: 20181010
  Serious: Yes (Congenital Anomaly, Other)
  Sender: FDA-Public Use
  Company Number: DE-SA-2018SA183968

PATIENT

DRUGS (15)
  1. HEPARIN [Suspect]
     Active Substance: HEPARIN SODIUM
     Route: 064
  2. NICOTINE. [Suspect]
     Active Substance: NICOTINE
     Route: 064
  3. PREDNISOLONE. [Suspect]
     Active Substance: PREDNISOLONE
     Route: 064
  4. RIVAROXABAN [Suspect]
     Active Substance: RIVAROXABAN
     Route: 064
  5. ASPIRIN. [Suspect]
     Active Substance: ASPIRIN
     Route: 064
  6. HYDROXYCHLOROQUINE [Suspect]
     Active Substance: HYDROXYCHLOROQUINE
     Route: 064
  7. SALBUTAMOL SULFATE [Suspect]
     Active Substance: ALBUTEROL SULFATE
     Route: 064
  8. EZETIMIBE. [Suspect]
     Active Substance: EZETIMIBE
     Route: 064
  9. SIMVASTATIN. [Suspect]
     Active Substance: SIMVASTATIN
     Route: 064
  10. RAMIPRIL. [Suspect]
     Active Substance: RAMIPRIL
     Dosage: 20 MG, QD
     Route: 064
  11. TORASEMIDE [Suspect]
     Active Substance: TORSEMIDE
     Route: 064
  12. TACROLIMUS. [Suspect]
     Active Substance: TACROLIMUS
     Route: 064
  13. METAMIZOLE SALT NOT SPECIFIED [Suspect]
     Active Substance: METAMIZOLE
     Route: 064
  14. PANTOPRAZOLE [Suspect]
     Active Substance: PANTOPRAZOLE
     Route: 064
  15. ALISKIREN [Suspect]
     Active Substance: ALISKIREN
     Route: 064

REACTIONS (4)
  - Truncus arteriosus persistent [Unknown]
  - Ventricular septal defect [Unknown]
  - Foetal exposure during pregnancy [Unknown]
  - Congenital cardiovascular anomaly [Unknown]
